FAERS Safety Report 9308192 (Version 5)
Quarter: 2015Q1

REPORT INFORMATION
  Report Type: Spontaneous
  Country: US (occurrence: US)
  Receive Date: 20130524
  Receipt Date: 20150203
  Transmission Date: 20150721
  Serious: Yes (Hospitalization, Other)
  Sender: FDA-Public Use
  Company Number: US-009507513-1305USA013022

PATIENT
  Sex: Male
  Weight: 102.49 kg

DRUGS (2)
  1. ADIPEX-P [Concomitant]
     Active Substance: PHENTERMINE HYDROCHLORIDE
     Dosage: UNK
     Dates: start: 1997
  2. PROPECIA [Suspect]
     Active Substance: FINASTERIDE
     Indication: ALOPECIA
     Dosage: 1 MG, QD
     Route: 048
     Dates: start: 199804

REACTIONS (20)
  - Bladder cancer [Unknown]
  - Lower urinary tract symptoms [Unknown]
  - Lipoma excision [Unknown]
  - Genital paraesthesia [Unknown]
  - Hypertension [Unknown]
  - Nocturia [Unknown]
  - Soft tissue injury [Unknown]
  - Drug ineffective [Unknown]
  - Hormone level abnormal [Unknown]
  - Diverticulitis [Unknown]
  - Insomnia [Unknown]
  - Sexual dysfunction [Not Recovered/Not Resolved]
  - Erectile dysfunction [Not Recovered/Not Resolved]
  - Bladder outlet obstruction [Unknown]
  - Polyp [Unknown]
  - Lipoma [Unknown]
  - Brain injury [Unknown]
  - Loss of libido [Unknown]
  - Coronary arterial stent insertion [Unknown]
  - Penile size reduced [Unknown]

NARRATIVE: CASE EVENT DATE: 199805
